FAERS Safety Report 14370192 (Version 2)
Quarter: 2018Q1

REPORT INFORMATION
  Report Type: Spontaneous
  Country: ES (occurrence: ES)
  Receive Date: 20180110
  Receipt Date: 20180202
  Transmission Date: 20180509
  Serious: Yes (Death, Hospitalization, Other)
  Sender: FDA-Public Use
  Company Number: ES-CIPLA LTD.-2017ES31172

PATIENT

DRUGS (4)
  1. LEVETIRACETAM. [Suspect]
     Active Substance: LEVETIRACETAM
     Indication: PRODUCT USED FOR UNKNOWN INDICATION
     Dosage: 500 MG, BID
     Route: 048
     Dates: start: 2017
  2. RISPERIDONE. [Interacting]
     Active Substance: RISPERIDONE
     Indication: PRODUCT USED FOR UNKNOWN INDICATION
     Dosage: 1 MG, 1/2-0-1/2
     Route: 048
     Dates: start: 2010
  3. GABAPENTIN. [Interacting]
     Active Substance: GABAPENTIN
     Indication: BACK PAIN
     Dosage: 300 MG, TID, 1-1-1
     Route: 048
     Dates: start: 20170626
  4. DUROGESIC [Interacting]
     Active Substance: FENTANYL
     Indication: BACK PAIN
     Dosage: UNK, 1/2 PARCHE/72 HORAS
     Route: 062
     Dates: start: 20170626, end: 20170628

REACTIONS (2)
  - Depressed level of consciousness [Fatal]
  - Drug interaction [Unknown]

NARRATIVE: CASE EVENT DATE: 20170627
